FAERS Safety Report 16362418 (Version 1)
Quarter: 2019Q3

REPORT INFORMATION
  Report Type: Spontaneous
  Country: US (occurrence: US)
  Receive Date: 20190526
  Receipt Date: 20190526
  Transmission Date: 20191004
  Serious: Yes (Other)
  Sender: FDA-Public Use
  Company Number: None

PATIENT
  Age: 82 Year
  Sex: Female
  Weight: 51.75 kg

DRUGS (17)
  1. BETAINE HCL CAPS [Concomitant]
  2. CAL/MAG.ZINC [Concomitant]
  3. VITAMIN B COMPLES [Concomitant]
  4. CLINDAMYCIN HCL 300 MG CAPS [Suspect]
     Active Substance: CLINDAMYCIN HYDROCHLORIDE
     Indication: ANTIBIOTIC PROPHYLAXIS
     Dosage: ?          QUANTITY:21 CAPSULE(S);?
     Route: 048
  5. WARFARIN, 2.5 MG NIGHTLY [Concomitant]
  6. VITAMIN B-12 1CC INJECTIONS TWICE MONTHLY [Concomitant]
  7. HERBAVISION [Concomitant]
  8. VITAMIN C, 1000 MG [Concomitant]
  9. VITAMIN E (D-ALPHA), 400 I.U. [Concomitant]
  10. AMITRIPTYLIN, 10 MG NIGHTLY [Concomitant]
  11. IRON BISGLYCINATE [Concomitant]
  12. VITAMIN D-3. 1000 I.U. [Concomitant]
  13. BUTCHER^S BROOM ROOT, 940 MG [Concomitant]
  14. PROBOTIC ACIDOPHILIS, 383 MG [Concomitant]
  15. ARMOUR THYROID 60 MG DAILY [Concomitant]
  16. POTASSIUM 198 MG [Concomitant]
  17. GLUCOSAMINE SULFATE, 500 MG, T.I.D. [Concomitant]

REACTIONS (4)
  - Mucosal disorder [None]
  - Vomiting [None]
  - Feeding disorder [None]
  - Non-cardiac chest pain [None]

NARRATIVE: CASE EVENT DATE: 20190517
